FAERS Safety Report 6406226-X (Version None)
Quarter: 2009Q4

REPORT INFORMATION
  Report Type: 
  Country: None (occurrence: None)
  Receive Date: 20091019
  Receipt Date: 20091005
  Transmission Date: 20100525
  Serious: Yes (Hospitalization)
  Sender: FDA-Public Use
  Company Number: PHEH2009US13045

PATIENT
  Sex: Female
  Weight: 63.492 kg

DRUGS (2)
  1. EXJADE [Suspect]
     Indication: IRON OVERLOAD
     Dosage: 1500 MG DAILY
     Route: 048
     Dates: start: 20090721, end: 20090916
  2. EXJADE [Suspect]
     Dosage: UNK
     Route: 048

REACTIONS (3)
  - RASH [None]
  - STEM CELL TRANSPLANT [None]
  - URTICARIA [None]
